FAERS Safety Report 17237472 (Version 1)
Quarter: 2020Q1

REPORT INFORMATION
  Report Type: Spontaneous
  Country: CN (occurrence: CN)
  Receive Date: 20200106
  Receipt Date: 20200106
  Transmission Date: 20200409
  Serious: Yes (Other)
  Sender: FDA-Public Use
  Company Number: CN-OTSUKA-2020_000055

PATIENT
  Age: 90 Year
  Sex: Female
  Weight: 30 kg

DRUGS (1)
  1. SAMSCA [Suspect]
     Active Substance: TOLVAPTAN
     Indication: HYPONATRAEMIA
     Dosage: 7.5 MG, QD
     Route: 045
     Dates: start: 20191203, end: 20191205

REACTIONS (3)
  - Hypokalaemia [Recovering/Resolving]
  - Incorrect route of product administration [Unknown]
  - Underdose [Unknown]

NARRATIVE: CASE EVENT DATE: 20191203
